FAERS Safety Report 6663102-5 (Version None)
Quarter: 2010Q1

REPORT INFORMATION
  Report Type: 
  Country: None (occurrence: None)
  Receive Date: 20100323
  Receipt Date: 20100107
  Transmission Date: 20100710
  Serious: No
  Sender: FDA-Public Use
  Company Number: 100107-0000015

PATIENT
  Sex: Male
  Weight: 13.6079 kg

DRUGS (2)
  1. SABRIL [Suspect]
     Indication: DRUG USE FOR UNKNOWN INDICATION
  2. TOPAMAX [Suspect]
     Indication: DRUG USE FOR UNKNOWN INDICATION

REACTIONS (2)
  - FATIGUE [None]
  - SLUGGISHNESS [None]
